FAERS Safety Report 9675655 (Version 1)
Quarter: 2013Q4

REPORT INFORMATION
  Report Type: Spontaneous
  Country: US (occurrence: None)
  Receive Date: 20131105
  Receipt Date: 20131105
  Transmission Date: 20140711
  Serious: Yes (Hospitalization)
  Sender: FDA-Public Use
  Company Number: 2013-US-002414

PATIENT
  Age: 91 Year
  Sex: Female
  Weight: 50.35 kg

DRUGS (3)
  1. XYREM (SODIUM OXYBATE) ORAL SOLUTION, 500MG/ML [Suspect]
     Indication: NARCOLEPSY
     Route: 048
     Dates: start: 200302, end: 2003
  2. XYREM (SODIUM OXYBATE) ORAL SOLUTION, 500MG/ML [Suspect]
     Indication: NARCOLEPSY
     Route: 048
     Dates: start: 200302, end: 2003
  3. LUNESTA (ESZOPICLONE) [Concomitant]

REACTIONS (2)
  - Myocardial infarction [None]
  - Head injury [None]
